FAERS Safety Report 20912932 (Version 1)
Quarter: 2022Q2

REPORT INFORMATION
  Report Type: Spontaneous
  Country: US (occurrence: US)
  Receive Date: 20220603
  Receipt Date: 20220603
  Transmission Date: 20220720
  Serious: No
  Sender: FDA-Public Use
  Company Number: US-ELI_LILLY_AND_COMPANY-US202205002047

PATIENT
  Age: 44 Year
  Sex: Male

DRUGS (6)
  1. HUMALOG KWIKPEN [Suspect]
     Active Substance: INSULIN LISPRO
     Indication: Product used for unknown indication
     Dosage: 20 U, UNKNOWN (10-12 UNITS IN THR MORNING)
     Route: 065
     Dates: start: 1992
  2. HUMALOG KWIKPEN [Suspect]
     Active Substance: INSULIN LISPRO
     Dosage: 15 U, DAILY (12-15 UNITS AT LUNCH)
     Route: 065
  3. HUMALOG KWIKPEN [Suspect]
     Active Substance: INSULIN LISPRO
     Dosage: 18 U, EACH EVENING (12-18 UNITS AT DINNER)
     Route: 065
  4. HUMALOG KWIKPEN [Suspect]
     Active Substance: INSULIN LISPRO
     Dosage: 5 U, UNKNOWN
     Route: 065
  5. SEMGLEE [INSULIN GLARGINE] [Concomitant]
     Indication: Type 1 diabetes mellitus
     Dosage: 31 U, EACH MORNING
     Route: 065
  6. SEMGLEE [INSULIN GLARGINE] [Concomitant]
     Dosage: 40 U, EACH EVENING
     Route: 065

REACTIONS (2)
  - Blood glucose increased [Recovering/Resolving]
  - Accidental underdose [Recovered/Resolved]

NARRATIVE: CASE EVENT DATE: 20220501
